FAERS Safety Report 17994060 (Version 1)
Quarter: 2020Q3

REPORT INFORMATION
  Report Type: Spontaneous
  Country: PY (occurrence: PY)
  Receive Date: 20200708
  Receipt Date: 20200708
  Transmission Date: 20201103
  Serious: Yes (Life-Threatening, Hospitalization)
  Sender: FDA-Public Use
  Company Number: PY-BIOVITRUM-2020PY3540

PATIENT
  Age: 4 Month
  Sex: Male

DRUGS (1)
  1. SYNAGIS [Suspect]
     Active Substance: PALIVIZUMAB
     Indication: PRODUCT USED FOR UNKNOWN INDICATION
     Route: 065
     Dates: start: 20200506

REACTIONS (4)
  - Injection site haemorrhage [Unknown]
  - Hypovolaemic shock [Unknown]
  - Blood disorder [Unknown]
  - Sepsis [Unknown]

NARRATIVE: CASE EVENT DATE: 2020
